FAERS Safety Report 4699944-5 (Version None)
Quarter: 2005Q2

REPORT INFORMATION
  Report Type: 
  Country: None (occurrence: None)
  Receive Date: 20050623
  Receipt Date: 20050614
  Transmission Date: 20051028
  Serious: Yes (Death)
  Sender: FDA-Public Use
  Company Number: 2005-05-2025

PATIENT
  Age: 70 Year
  Sex: Male

DRUGS (1)
  1. IMDUR [Suspect]
     Dosage: 60 MG QD ORAL
     Route: 048

REACTIONS (1)
  - DEATH [None]
